FAERS Safety Report 6310340-7 (Version None)
Quarter: 2009Q3

REPORT INFORMATION
  Report Type: 
  Country: None (occurrence: None)
  Receive Date: 20090814
  Receipt Date: 20090811
  Transmission Date: 20100115
  Serious: Yes (Life-Threatening, Other)
  Sender: FDA-Public Use
  Company Number: PHHY2009DK20969

PATIENT
  Sex: Female

DRUGS (8)
  1. TASIGNA [Suspect]
     Indication: CHRONIC MYELOID LEUKAEMIA
     Dosage: 200 MG, BID
     Dates: end: 20080317
  2. TASIGNA [Suspect]
     Dosage: 200 MG, BID
     Dates: start: 20080416
  3. TASIGNA [Suspect]
     Dosage: 200 MG, BID
  4. HALCION [Concomitant]
     Dosage: 0.25 MG, 1
  5. KALEORID [Concomitant]
     Dosage: 750 MG, 3
  6. FURIX [Concomitant]
     Dosage: 40 MG, 2
  7. PICOLON [Concomitant]
     Dosage: 15 DROPS, 2
  8. MAGNESIA ^ACO^ [Concomitant]
     Dosage: 1X2

REACTIONS (8)
  - ASTHENIA [None]
  - ENCEPHALITIS [None]
  - LETHARGY [None]
  - MALIGNANT NEOPLASM PROGRESSION [None]
  - MENINGITIS [None]
  - MUSCLE SPASTICITY [None]
  - NUCHAL RIGIDITY [None]
  - VITH NERVE PARALYSIS [None]
